FAERS Safety Report 9857970 (Version 2)
Quarter: 2014Q1

REPORT INFORMATION
  Report Type: Spontaneous
  Country: US (occurrence: US)
  Receive Date: 20140131
  Receipt Date: 20140212
  Transmission Date: 20141002
  Serious: No
  Sender: FDA-Public Use
  Company Number: US-PFIZER INC-2014024427

PATIENT
  Age: 33 Month
  Sex: Female

DRUGS (1)
  1. AZITHROMYCIN [Suspect]
     Indication: RESPIRATORY TRACT INFECTION
     Dosage: ONE TEASPOON ON THE FIRST DAY AND HALF A TEASPOON THEREAFTER), 1X/DAY
     Route: 048
     Dates: start: 20140120

REACTIONS (2)
  - Poor quality drug administered [Unknown]
  - Product contamination physical [Unknown]
